FAERS Safety Report 24121630 (Version 2)
Quarter: 2024Q3

REPORT INFORMATION
  Report Type: Report from Study
  Country: CA (occurrence: CA)
  Receive Date: 20240722
  Receipt Date: 20240802
  Transmission Date: 20241017
  Serious: Yes (Other)
  Sender: HLS THERAPEUTICS
  Company Number: CA-HLS-202401771

PATIENT
  Sex: Female

DRUGS (3)
  1. CLOZARIL [Suspect]
     Active Substance: CLOZAPINE
     Indication: Product used for unknown indication
     Route: 065
  2. CLOZARIL [Suspect]
     Active Substance: CLOZAPINE
     Indication: Product used for unknown indication
     Dosage: 175 MG IN THE MORNING AND 300 MG AT BEDTIME
     Route: 048
     Dates: start: 20240118
  3. RISPERIDONE [Concomitant]
     Active Substance: RISPERIDONE
     Indication: Product used for unknown indication
     Route: 065

REACTIONS (6)
  - Psychotic symptom [Recovering/Resolving]
  - Amenorrhoea [Recovering/Resolving]
  - Speech disorder [Unknown]
  - Drug effect less than expected [Unknown]
  - Dyskinesia [Recovering/Resolving]
  - Paranoia [Recovering/Resolving]
